FAERS Safety Report 6635489-0 (Version None)
Quarter: 2010Q1

REPORT INFORMATION
  Report Type: 
  Country: None (occurrence: None)
  Receive Date: 20100315
  Receipt Date: 20100305
  Transmission Date: 20100710
  Serious: Yes (Disabling)
  Sender: FDA-Public Use
  Company Number: US-ABBOTT-10P-163-0630734-00

PATIENT
  Age: 58 Year
  Sex: Female

DRUGS (5)
  1. SYNTHROID [Suspect]
     Indication: THYROID DISORDER
     Dates: end: 20100120
  2. SYNTHROID [Suspect]
     Dates: start: 20100120
  3. CYTOMEL [Suspect]
     Indication: THYROID DISORDER
     Dates: start: 20100120
  4. CYTOMEL [Suspect]
     Dates: end: 20100208
  5. HYDROXYCHLOROQUINE SULFATE [Concomitant]
     Indication: DRUG USE FOR UNKNOWN INDICATION

REACTIONS (10)
  - BLOOD PRESSURE ABNORMAL [None]
  - DISABILITY [None]
  - DIZZINESS [None]
  - DRY MOUTH [None]
  - DYSARTHRIA [None]
  - FATIGUE [None]
  - HEART RATE INCREASED [None]
  - INCORRECT DOSE ADMINISTERED [None]
  - MALAISE [None]
  - SENSORY DISTURBANCE [None]
